FAERS Safety Report 13916955 (Version 2)
Quarter: 2017Q3

REPORT INFORMATION
  Report Type: Spontaneous
  Country: US (occurrence: US)
  Receive Date: 20170829
  Receipt Date: 20170919
  Transmission Date: 20171127
  Serious: Yes (Other)
  Sender: FDA-Public Use
  Company Number: US-PFIZER INC-2017365942

PATIENT
  Age: 85 Year
  Sex: Female

DRUGS (7)
  1. CLONAZEPAM. [Interacting]
     Active Substance: CLONAZEPAM
     Dosage: UNK
  2. BACLOFEN. [Interacting]
     Active Substance: BACLOFEN
     Dosage: UNK
  3. TYLENOL [Interacting]
     Active Substance: ACETAMINOPHEN
     Dosage: UNK
  4. ARTANE [Interacting]
     Active Substance: TRIHEXYPHENIDYL HYDROCHLORIDE
     Dosage: UNK
  5. OXYCODONE [Interacting]
     Active Substance: OXYCODONE
     Indication: PAIN
     Dosage: UNK
  6. EFFEXOR [Suspect]
     Active Substance: VENLAFAXINE HYDROCHLORIDE
     Dosage: UNK
  7. ABILIFY [Interacting]
     Active Substance: ARIPIPRAZOLE
     Dosage: UNK

REACTIONS (7)
  - Hallucination [Unknown]
  - Overdose [Unknown]
  - Seizure [Unknown]
  - Drug interaction [Unknown]
  - Confusional state [Unknown]
  - Feeling hot [Unknown]
  - Tremor [Unknown]
